FAERS Safety Report 21087041 (Version 2)
Quarter: 2022Q3

REPORT INFORMATION
  Report Type: Report from Study
  Country: MX (occurrence: MX)
  Receive Date: 20220715
  Receipt Date: 20220817
  Transmission Date: 20221026
  Serious: Yes (Death, Other)
  Sender: FDA-Public Use
  Company Number: MX-NOVARTISPH-NVSC2022MX160239

PATIENT
  Age: 51 Year
  Sex: Female
  Weight: 49 kg

DRUGS (2)
  1. VOTRIENT [Suspect]
     Active Substance: PAZOPANIB HYDROCHLORIDE
     Indication: Liposarcoma
     Dosage: 3 UNK
     Route: 048
     Dates: start: 20220425, end: 20220505
  2. VOTRIENT [Suspect]
     Active Substance: PAZOPANIB HYDROCHLORIDE
     Dosage: UNK (1 TABLET IN THE MORNING AND 2 AT NIGHT)
     Route: 065

REACTIONS (6)
  - Liposarcoma [Fatal]
  - Dyspnoea [Fatal]
  - Respiratory arrest [Fatal]
  - Pancreatic disorder [Unknown]
  - Weight decreased [Unknown]
  - Product use in unapproved indication [Unknown]

NARRATIVE: CASE EVENT DATE: 20220425
